FAERS Safety Report 9474879 (Version 2)
Quarter: 2013Q4

REPORT INFORMATION
  Report Type: Spontaneous
  Country: JP (occurrence: JP)
  Receive Date: 20130823
  Receipt Date: 20131003
  Transmission Date: 20140711
  Serious: Yes (Other)
  Sender: FDA-Public Use
  Company Number: JP-ASTRAZENECA-2013SE65117

PATIENT
  Sex: 0

DRUGS (2)
  1. BLOPRESS [Suspect]
     Route: 048
     Dates: start: 201011
  2. MINOMYCIN [Suspect]
     Route: 065

REACTIONS (1)
  - Lymphocyte count decreased [Unknown]
